FAERS Safety Report 8081140-5 (Version None)
Quarter: 2012Q1

REPORT INFORMATION
  Report Type: 
  Country: None (occurrence: None)
  Receive Date: 20120130
  Receipt Date: 20120120
  Transmission Date: 20120608
  Serious: Yes (Other)
  Sender: FDA-Public Use
  Company Number: CA-GLAXOSMITHKLINE-A0935225A

PATIENT
  Sex: Male
  Weight: 111.4 kg

DRUGS (9)
  1. BLOOD PRESSURE MEDICATION [Concomitant]
     Indication: HYPERTENSION
  2. SPIRIVA [Concomitant]
  3. BLOOD THINNER [Concomitant]
  4. CHOLESTEROL REDUCING AGENT [Concomitant]
     Indication: BLOOD CHOLESTEROL INCREASED
  5. VENTOLIN [Concomitant]
  6. VENTOLIN [Concomitant]
  7. SPIRIVA [Concomitant]
  8. ADVAIR DISKUS 100/50 [Suspect]
     Indication: CHRONIC OBSTRUCTIVE PULMONARY DISEASE
     Dosage: 2PUFF TWICE PER DAY
     Route: 055
     Dates: start: 20060101
  9. PREDNISONE TAB [Suspect]
     Indication: PRODUCT USED FOR UNKNOWN INDICATION
     Route: 048

REACTIONS (19)
  - APPETITE DISORDER [None]
  - SPUTUM DISCOLOURED [None]
  - INFLUENZA LIKE ILLNESS [None]
  - NAUSEA [None]
  - SKIN EXFOLIATION [None]
  - SNEEZING [None]
  - DIARRHOEA [None]
  - VOMITING [None]
  - LUNG INFECTION [None]
  - MUCOSAL DISCOLOURATION [None]
  - POOR QUALITY SLEEP [None]
  - SKIN ATROPHY [None]
  - DYSPNOEA [None]
  - COLD SWEAT [None]
  - ILL-DEFINED DISORDER [None]
  - LOWER RESPIRATORY TRACT INFECTION [None]
  - PYREXIA [None]
  - CHEST DISCOMFORT [None]
  - NASAL CONGESTION [None]
